FAERS Safety Report 10506797 (Version 1)
Quarter: 2014Q3

REPORT INFORMATION
  Report Type: Spontaneous
  Country: US (occurrence: None)
  Receive Date: 20140915
  Receipt Date: 20140915
  Transmission Date: 20150326
  Serious: Yes (Other)
  Sender: FDA-Public Use
  Company Number: 2014-US-005243

PATIENT
  Age: 61 Year
  Sex: Male

DRUGS (1)
  1. XYREM [Suspect]
     Active Substance: SODIUM OXYBATE
     Indication: NARCOLEPSY
     Dosage: FIRST DOSE
     Route: 048
     Dates: start: 201008, end: 2010

REACTIONS (8)
  - Dyspnoea [None]
  - Muscle spasms [None]
  - Muscle rigidity [None]
  - Photopsia [None]
  - Sleep apnoea syndrome [None]
  - Insomnia [None]
  - Restlessness [None]
  - Sleep paralysis [None]

NARRATIVE: CASE EVENT DATE: 201406
